FAERS Safety Report 16869004 (Version 4)
Quarter: 2024Q3

REPORT INFORMATION
  Report Type: Spontaneous
  Country: CA (occurrence: CA)
  Receive Date: 20190930
  Receipt Date: 20240708
  Transmission Date: 20241017
  Serious: Yes (Disabling, Other)
  Sender: BAUSCH AND LOMB
  Company Number: CA-FERRINGPH-2019FE06084

PATIENT
  Sex: Female

DRUGS (6)
  1. BUDESONIDE [Suspect]
     Active Substance: BUDESONIDE
     Indication: Product used for unknown indication
     Dosage: UNK
     Route: 048
     Dates: start: 201702, end: 201712
  2. BUDESONIDE [Suspect]
     Active Substance: BUDESONIDE
     Route: 048
  3. PENTASA [Suspect]
     Active Substance: MESALAMINE
     Indication: Product used for unknown indication
     Route: 048
     Dates: start: 201712, end: 201803
  4. PENTASA [Suspect]
     Active Substance: MESALAMINE
     Route: 048
  5. PREDNISONE [Suspect]
     Active Substance: PREDNISONE
     Indication: Product used for unknown indication
     Dosage: TAPERING DOSE
     Route: 048
     Dates: start: 201803
  6. PREDNISONE [Suspect]
     Active Substance: PREDNISONE
     Route: 048

REACTIONS (4)
  - Tachycardia [Unknown]
  - Colitis ulcerative [Unknown]
  - Pancreatitis [Unknown]
  - Drug ineffective [Not Recovered/Not Resolved]
